FAERS Safety Report 4996420-7 (Version None)
Quarter: 2006Q2

REPORT INFORMATION
  Report Type: 
  Country: None (occurrence: None)
  Receive Date: 20060505
  Receipt Date: 20060427
  Transmission Date: 20061013
  Serious: Yes (Other)
  Sender: FDA-Public Use
  Company Number: 2006042852

PATIENT
  Age: 67 Year
  Sex: Female

DRUGS (3)
  1. XALATAN [Suspect]
     Indication: GLAUCOMA
     Dosage: (NOCTE), OPHTHALMIC
     Route: 047
     Dates: start: 20060316
  2. OROXINE (LEVOTHYROXINE SODIUM) [Concomitant]
  3. SIMVASTATIN [Concomitant]

REACTIONS (2)
  - CHEST DISCOMFORT [None]
  - DYSPNOEA [None]
